FAERS Safety Report 5401562-8 (Version None)
Quarter: 2007Q3

REPORT INFORMATION
  Report Type: 
  Country: None (occurrence: None)
  Receive Date: 20070718
  Receipt Date: 20070704
  Transmission Date: 20080115
  Serious: Yes (Other)
  Sender: FDA-Public Use
  Company Number: THYM-11493

PATIENT
  Age: 56 Year
  Sex: Male
  Weight: 88 kg

DRUGS (5)
  1. THYMOGLOBULIN [Suspect]
     Indication: LIVER TRANSPLANT
     Dosage: 132 MG QOD IV
     Route: 042
     Dates: start: 20061017, end: 20061019
  2. UMULINE. MFR: LILLY ELI AND COMPANY [Concomitant]
  3. PROGRAF. MFR: FUJISAWA PHARM. [Concomitant]
  4. CELLCEPT. MFR: ROCHE [Concomitant]
  5. METHYLPREDNISOLONE 16MG TAB [Concomitant]

REACTIONS (3)
  - COAGULATION FACTOR INCREASED [None]
  - COMPLICATIONS OF TRANSPLANTED LIVER [None]
  - PORTAL VEIN THROMBOSIS [None]
